FAERS Safety Report 17137564 (Version 1)
Quarter: 2019Q4

REPORT INFORMATION
  Report Type: Spontaneous
  Country: US (occurrence: US)
  Receive Date: 20191210
  Receipt Date: 20191210
  Transmission Date: 20200122
  Serious: Yes (Life-Threatening, Other)
  Sender: FDA-Public Use
  Company Number: US-DRREDDYS-USA/USA/19/0117146

PATIENT
  Age: 56 Year
  Sex: Male

DRUGS (3)
  1. CYCLOPHOSPHAMIDE. [Interacting]
     Active Substance: CYCLOPHOSPHAMIDE
     Indication: PLASMA CELL MYELOMA
     Dosage: COMPLETED DAY 1 OF CYCLE 2 OF CYBORD TREATMENT REGIMEN 14 DAYS BEFORE PRESENTATION
  2. DEXAMETHASONE SODIUM PHOSPHATE INJECTION, 4 MG/ML [Suspect]
     Active Substance: DEXAMETHASONE SODIUM PHOSPHATE
     Indication: PLASMA CELL MYELOMA
     Dosage: COMPLETED DAY 1 OF CYCLE 2 OF CYBORD TREATMENT REGIMEN 14 DAYS BEFORE PRESENTATION
     Route: 065
  3. BORTEZOMIB. [Interacting]
     Active Substance: BORTEZOMIB
     Indication: PLASMA CELL MYELOMA
     Dosage: COMPLETED DAY 1 OF CYCLE 2 OF CYBORD TREATMENT REGIMEN 14 DAYS BEFORE PRESENTATION
     Route: 065

REACTIONS (4)
  - Venoocclusive liver disease [Unknown]
  - Toxicity to various agents [Unknown]
  - Hepatic encephalopathy [Unknown]
  - Drug interaction [Unknown]
